FAERS Safety Report 23561976 (Version 1)
Quarter: 2024Q1

REPORT INFORMATION
  Report Type: Report from Study
  Country: US (occurrence: US)
  Receive Date: 20240225
  Receipt Date: 20240225
  Transmission Date: 20240410
  Serious: Yes (Other)
  Sender: FDA-Public Use
  Company Number: US-ABBVIE-5649845

PATIENT
  Age: 57 Year
  Sex: Female

DRUGS (1)
  1. VENCLEXTA [Suspect]
     Active Substance: VENETOCLAX
     Indication: Chronic lymphocytic leukaemia
     Route: 048
     Dates: start: 20231123

REACTIONS (5)
  - Cataract [Unknown]
  - Fatigue [Unknown]
  - Dizziness [Unknown]
  - Hyperhidrosis [Unknown]
  - Depression [Unknown]

NARRATIVE: CASE EVENT DATE: 20240201
